FAERS Safety Report 8159258-8 (Version None)
Quarter: 2012Q1

REPORT INFORMATION
  Report Type: 
  Country: None (occurrence: None)
  Receive Date: 20120217
  Receipt Date: 20120206
  Transmission Date: 20120608
  Serious: Yes (Other)
  Sender: FDA-Public Use
  Company Number: 2012P1004239

PATIENT
  Age: 2 Year
  Sex: Male

DRUGS (2)
  1. VANCOMYCIN [Concomitant]
  2. CEFTRIAXONE [Suspect]
     Indication: MENINGITIS
     Dosage: 100 MG/KG/QD

REACTIONS (2)
  - HYPERURICOSURIA [None]
  - URINARY RETENTION [None]
